FAERS Safety Report 7819990-X (Version None)
Quarter: 2011Q4

REPORT INFORMATION
  Report Type: 
  Country: None (occurrence: None)
  Receive Date: 20111018
  Receipt Date: 20111011
  Transmission Date: 20120403
  Serious: Yes (Hospitalization)
  Sender: FDA-Public Use
  Company Number: JP-EISAI INC-E2020-09611-SPO-JP

PATIENT
  Age: 95 Year
  Sex: Female

DRUGS (8)
  1. CLARITHROMYCIN [Suspect]
     Route: 048
     Dates: start: 20110524
  2. ACETAMINOPHEN [Concomitant]
     Route: 048
     Dates: start: 20110524
  3. HISTABLOCK [Concomitant]
     Route: 048
     Dates: start: 20110524
  4. MEVATORTE [Concomitant]
     Route: 048
  5. GASMOTIN [Concomitant]
     Route: 048
  6. AMBROXOL HYDROCHLORIDE [Concomitant]
     Route: 048
     Dates: start: 20110524
  7. ARICEPT [Suspect]
     Route: 048
     Dates: start: 20110519, end: 20110526
  8. ARICEPT [Suspect]
     Indication: DEMENTIA ALZHEIMER'S TYPE
     Route: 048
     Dates: start: 20100101, end: 20110518

REACTIONS (3)
  - MUSCULAR WEAKNESS [None]
  - RESPIRATORY ALKALOSIS [None]
  - ALTERED STATE OF CONSCIOUSNESS [None]
